FAERS Safety Report 6508207-4 (Version None)
Quarter: 2009Q4

REPORT INFORMATION
  Report Type: 
  Country: None (occurrence: None)
  Receive Date: 20091221
  Receipt Date: 20081223
  Transmission Date: 20100525
  Serious: No
  Sender: FDA-Public Use
  Company Number: CA-ASTRAZENECA-2008UW28625

PATIENT
  Age: 749 Month
  Sex: Female
  Weight: 86.2 kg

DRUGS (1)
  1. CRESTOR [Suspect]
     Indication: HYPERLIPIDAEMIA
     Route: 048
     Dates: start: 20081101

REACTIONS (2)
  - BACK PAIN [None]
  - DIZZINESS [None]
